FAERS Safety Report 5242512-7 (Version None)
Quarter: 2007Q1

REPORT INFORMATION
  Report Type: 
  Country: None (occurrence: None)
  Receive Date: 20070221
  Receipt Date: 20070207
  Transmission Date: 20070707
  Serious: Yes (Life-Threatening, Hospitalization, Other)
  Sender: FDA-Public Use
  Company Number: US-KINGPHARMUSA00001-K200700139

PATIENT

DRUGS (2)
  1. PROLOPRIM [Suspect]
     Dosage: 200 MG, BID
     Route: 048
     Dates: start: 20070118, end: 20070118
  2. LEVOTHYROXINE SODIUM [Concomitant]

REACTIONS (3)
  - OEDEMA [None]
  - RASH [None]
  - SWOLLEN TONGUE [None]
